FAERS Safety Report 18460967 (Version 1)
Quarter: 2020Q4

REPORT INFORMATION
  Report Type: Spontaneous
  Country: GB (occurrence: GB)
  Receive Date: 20201104
  Receipt Date: 20201104
  Transmission Date: 20210114
  Serious: Yes (Disabling)
  Sender: FDA-Public Use
  Company Number: GB-TEVA-2020-GB-1844245

PATIENT
  Age: 57 Year
  Sex: Female
  Weight: 59.41 kg

DRUGS (1)
  1. ANASTROZOLE. [Suspect]
     Active Substance: ANASTROZOLE
     Dosage: 1 MG
     Route: 048
     Dates: start: 20170601

REACTIONS (2)
  - Blindness unilateral [Not Recovered/Not Resolved]
  - Cataract [Not Recovered/Not Resolved]

NARRATIVE: CASE EVENT DATE: 20170601
